FAERS Safety Report 4304057-8 (Version None)
Quarter: 2004Q1

REPORT INFORMATION
  Report Type: 
  Country: None (occurrence: None)
  Receive Date: 20040223
  Receipt Date: 20031110
  Transmission Date: 20041129
  Serious: Yes (Other)
  Sender: FDA-Public Use
  Company Number: PHEH2003US10311

PATIENT
  Age: 48 Year
  Sex: Female

DRUGS (7)
  1. ZELNORM [Suspect]
     Indication: IRRITABLE BOWEL SYNDROME
     Dosage: 6 MG, BID, ORAL
     Route: 048
     Dates: start: 20030701
  2. WELLBUTRIN [Suspect]
  3. SYNTHROID [Concomitant]
  4. PROZAC [Concomitant]
  5. ZINC (ZINC) [Concomitant]
  6. TRILEPTAL [Concomitant]
  7. KLONOPIN [Suspect]

REACTIONS (5)
  - AFFECT LABILITY [None]
  - DEPRESSION [None]
  - DRUG INTERACTION [None]
  - GASTROENTERITIS HELICOBACTER [None]
  - MOOD SWINGS [None]
